FAERS Safety Report 5423845-8 (Version None)
Quarter: 2007Q3

REPORT INFORMATION
  Report Type: 
  Country: None (occurrence: None)
  Receive Date: 20070823
  Receipt Date: 20060711
  Transmission Date: 20080115
  Serious: No
  Sender: FDA-Public Use
  Company Number: US-BRISTOL-MYERS SQUIBB COMPANY-13438429

PATIENT

DRUGS (2)
  1. BLENOXANE [Suspect]
     Route: 042
  2. DACARBAZINE [Suspect]
     Route: 042

REACTIONS (5)
  - CHILLS [None]
  - ERYTHEMA [None]
  - RASH [None]
  - THROAT TIGHTNESS [None]
  - URTICARIA [None]
